FAERS Safety Report 6886561 (Version 2)
Quarter: 2020Q3

REPORT INFORMATION
  Report Type: Report from Study
  Country: US (occurrence: US)
  Receive Date: 20090120
  Receipt Date: 20090209
  Transmission Date: 20201104
  Serious: Yes (Hospitalization, Other)
  Sender: FDA-Public Use
  Company Number: US-ROCHE-607059

PATIENT
  Age: 46 Year
  Sex: Female

DRUGS (1)
  1. IBANDRONIC ACID. [Suspect]
     Active Substance: IBANDRONIC ACID
     Indication: OSTEOPOROSIS
     Route: 065
     Dates: end: 200810

REACTIONS (6)
  - Clostridial infection [Unknown]
  - Oesophageal ulcer [Unknown]
  - Hiatus hernia [Unknown]
  - Dehydration [Unknown]
  - Oesophageal stenosis [Unknown]
  - Thrombosis [Unknown]

NARRATIVE: CASE EVENT DATE: 20080401
